FAERS Safety Report 12171123 (Version 1)
Quarter: 2016Q1

REPORT INFORMATION
  Report Type: Report from Study
  Country: US (occurrence: US)
  Receive Date: 20160311
  Receipt Date: 20160311
  Transmission Date: 20160526
  Serious: Yes (Hospitalization, Other)
  Sender: FDA-Public Use
  Company Number: US-ASTELLAS-2015US040549

PATIENT
  Age: 83 Year
  Sex: Male

DRUGS (1)
  1. ENZALUTAMIDE [Suspect]
     Active Substance: ENZALUTAMIDE
     Indication: PROSTATE CANCER METASTATIC
     Route: 048
     Dates: start: 20150926, end: 20150929

REACTIONS (3)
  - Anaemia [Recovering/Resolving]
  - Myelodysplastic syndrome [Unknown]
  - Large intestinal haemorrhage [Recovering/Resolving]

NARRATIVE: CASE EVENT DATE: 20150929
